FAERS Safety Report 24563416 (Version 3)
Quarter: 2024Q4

REPORT INFORMATION
  Report Type: Report from Study
  Country: US (occurrence: US)
  Receive Date: 20241030
  Receipt Date: 20241210
  Transmission Date: 20250115
  Serious: Yes (Hospitalization, Other)
  Sender: SUNOVION
  Company Number: US-SMPA-2024SPA004226

PATIENT

DRUGS (2)
  1. ORGOVYX [Suspect]
     Active Substance: RELUGOLIX
     Indication: Prostate cancer
     Dosage: 120 MG, QD
     Route: 048
     Dates: start: 20240906
  2. XTANDI [Concomitant]
     Active Substance: ENZALUTAMIDE
     Dosage: UNK
     Route: 065

REACTIONS (15)
  - Transcatheter aortic valve implantation [Unknown]
  - Heart rate abnormal [Unknown]
  - Blood pressure abnormal [Unknown]
  - Restless legs syndrome [Unknown]
  - Sleep disorder [Unknown]
  - Muscle atrophy [Unknown]
  - Weight decreased [Unknown]
  - Fatigue [Unknown]
  - Urinary tract infection [Unknown]
  - Cognitive disorder [Unknown]
  - Bladder pain [Unknown]
  - Gait inability [Unknown]
  - Cough [Unknown]
  - Back pain [Unknown]
  - Incorrect dose administered [Unknown]
